FAERS Safety Report 6571829-9 (Version None)
Quarter: 2010Q1

REPORT INFORMATION
  Report Type: 
  Country: None (occurrence: None)
  Receive Date: 20100205
  Receipt Date: 20100127
  Transmission Date: 20100710
  Serious: Yes (Hospitalization, Other)
  Sender: FDA-Public Use
  Company Number: US-BAYER-201012653NA

PATIENT
  Age: 20 Year
  Sex: Female
  Weight: 57 kg

DRUGS (2)
  1. MIRENA [Suspect]
     Indication: CONTRACEPTION
     Dosage: CONTINUOUS
     Route: 015
     Dates: start: 20081216, end: 20100120
  2. MIRENA [Suspect]
     Dosage: CONTINUOUS
     Route: 015
     Dates: start: 20070101, end: 20070101

REACTIONS (5)
  - ENDOMETRIOSIS [None]
  - INTRA-UTERINE CONTRACEPTIVE DEVICE REMOVAL [None]
  - MEDICAL DEVICE COMPLICATION [None]
  - OVARIAN CYST RUPTURED [None]
  - PELVIC PAIN [None]
